FAERS Safety Report 5884673-2 (Version None)
Quarter: 2008Q3

REPORT INFORMATION
  Report Type: 
  Country: None (occurrence: None)
  Receive Date: 20080911
  Receipt Date: 20080903
  Transmission Date: 20090109
  Serious: Yes (Other)
  Sender: FDA-Public Use
  Company Number: 2008SP018179

PATIENT
  Age: 52 Year
  Sex: Male

DRUGS (1)
  1. TEMODAL [Suspect]
     Indication: GLIOBLASTOMA MULTIFORME
     Dosage: ; PO
     Route: 048

REACTIONS (4)
  - CHOLANGITIS [None]
  - CHOLELITHIASIS [None]
  - HEPATIC FUNCTION ABNORMAL [None]
  - HEPATOTOXICITY [None]
